FAERS Safety Report 24093513 (Version 1)
Quarter: 2024Q3

REPORT INFORMATION
  Report Type: Spontaneous
  Country: US (occurrence: US)
  Receive Date: 20240715
  Receipt Date: 20240715
  Transmission Date: 20241016
  Serious: No
  Sender: MERCK
  Company Number: US-009507513-2407USA003943

PATIENT
  Age: 1 Year
  Sex: Male

DRUGS (1)
  1. STERILE DILUENT (WATER) [Suspect]
     Active Substance: WATER
     Indication: Product used for unknown indication
     Dosage: UNK UNK, UNKNOWN
     Route: 030
     Dates: start: 20240705

REACTIONS (5)
  - Needle issue [Unknown]
  - Poor quality device used [Unknown]
  - Device connection issue [Unknown]
  - Injury associated with device [Unknown]
  - No adverse event [Unknown]

NARRATIVE: CASE EVENT DATE: 20240705
